FAERS Safety Report 4870590-3 (Version None)
Quarter: 2005Q4

REPORT INFORMATION
  Report Type: 
  Country: None (occurrence: None)
  Receive Date: 20051223
  Receipt Date: 20051212
  Transmission Date: 20060501
  Serious: Yes (Hospitalization)
  Sender: FDA-Public Use
  Company Number: 05-0158PO

PATIENT
  Sex: Female

DRUGS (5)
  1. PONSTEL [Suspect]
     Indication: ABDOMINAL PAIN
     Dosage: 500 MG, AS NEEDED, ORALLY
     Route: 048
  2. PONSTEL [Suspect]
     Indication: PELVIC PAIN
     Dosage: 500 MG, AS NEEDED, ORALLY
     Route: 048
  3. TENORETIC 100 [Concomitant]
  4. INDAPAMIDE [Concomitant]
  5. ZANIDIP [Concomitant]

REACTIONS (9)
  - ABDOMINAL PAIN LOWER [None]
  - CALCULUS URINARY [None]
  - CONSTIPATION [None]
  - DIARRHOEA [None]
  - DRUG INEFFECTIVE [None]
  - HAEMATOCHEZIA [None]
  - INSOMNIA [None]
  - VERTIGO [None]
  - VOMITING [None]
